FAERS Safety Report 8577548-1 (Version None)
Quarter: 2012Q3

REPORT INFORMATION
  Report Type: 
  Country: None (occurrence: None)
  Receive Date: 20120807
  Receipt Date: 20120730
  Transmission Date: 20120928
  Serious: Yes (Other)
  Sender: FDA-Public Use
  Company Number: US-VERTEX PHARMACEUTICALS INC.-AE-2012-010232

PATIENT
  Sex: Female
  Weight: 138.02 kg

DRUGS (1)
  1. INCIVEK [Suspect]
     Indication: HEPATITIS C
     Route: 048

REACTIONS (15)
  - ANAEMIA [None]
  - WHITE BLOOD CELL COUNT DECREASED [None]
  - ANAL PRURITUS [None]
  - RASH [None]
  - ANORECTAL DISCOMFORT [None]
  - NAUSEA [None]
  - HEPATIC ENCEPHALOPATHY [None]
  - DEPRESSION [None]
  - WEIGHT DECREASED [None]
  - DECREASED APPETITE [None]
  - FAECES DISCOLOURED [None]
  - DIARRHOEA [None]
  - PLATELET COUNT DECREASED [None]
  - DYSGEUSIA [None]
  - FATIGUE [None]
